FAERS Safety Report 5633905-4 (Version None)
Quarter: 2008Q1

REPORT INFORMATION
  Report Type: 
  Country: None (occurrence: None)
  Receive Date: 20080221
  Receipt Date: 20080211
  Transmission Date: 20080703
  Serious: No
  Sender: FDA-Public Use
  Company Number: US-BOEHRINGER INGELHEIM GMBH, GERMANY-2008-BP-02198BP

PATIENT
  Sex: Male

DRUGS (2)
  1. FLOMAX [Suspect]
     Indication: BLADDER DISORDER
     Route: 048
     Dates: start: 19970101
  2. DETROL [Concomitant]
     Indication: BLADDER DISORDER
     Dates: start: 20080101

REACTIONS (1)
  - NOCTURIA [None]
